FAERS Safety Report 9185458 (Version 1)
Quarter: 2012Q4

REPORT INFORMATION
  Report Type: 
  Country: US (occurrence: US)
  Receive Date: 20121101
  Receipt Date: 20121101
  Transmission Date: 20130627
  Serious: Yes (Other)
  Sender: FDA-Public Use
  Company Number: US-JNJFOC-20121014253

PATIENT
  Age: 29 Year
  Sex: Male

DRUGS (1)
  1. INFLIXIMAB, RECOMBINANT [Suspect]
     Indication: CROHN^S DISEASE
     Dosage: start date reported as, the patient was on infliximab from past 2 years.
     Route: 042

REACTIONS (2)
  - Stomatitis [Recovering/Resolving]
  - Colitis [Recovering/Resolving]
